FAERS Safety Report 6983924-0 (Version None)
Quarter: 2010Q3

REPORT INFORMATION
  Report Type: 
  Country: None (occurrence: None)
  Receive Date: 20100914
  Receipt Date: 20090416
  Transmission Date: 20110219
  Serious: No
  Sender: FDA-Public Use
  Company Number: US-WYE-H09012409

PATIENT

DRUGS (1)
  1. ADVIL LIQUI-GELS [Suspect]
     Dosage: UNKNOWN
     Route: 048

REACTIONS (2)
  - DRUG SCREEN FALSE POSITIVE [None]
  - OPIATES POSITIVE [None]
